FAERS Safety Report 20024419 (Version 4)
Quarter: 2021Q4

REPORT INFORMATION
  Report Type: Spontaneous
  Country: FR (occurrence: None)
  Receive Date: 20211102
  Receipt Date: 20211208
  Transmission Date: 20220303
  Serious: Yes (Hospitalization)
  Sender: FDA-Public Use
  Company Number: FR-ROCHE-2946239

PATIENT
  Sex: Male

DRUGS (2)
  1. RIVOTRIL [Suspect]
     Active Substance: CLONAZEPAM
     Indication: Product used for unknown indication
     Dosage: 0.25 % 20 ML
     Route: 065
  2. FLUMAZENIL [Concomitant]
     Active Substance: FLUMAZENIL

REACTIONS (3)
  - Sedation [Recovering/Resolving]
  - Intentional product misuse [Unknown]
  - Product complaint [Unknown]
